FAERS Safety Report 7230554-1 (Version None)
Quarter: 2011Q1

REPORT INFORMATION
  Report Type: 
  Country: None (occurrence: None)
  Receive Date: 20110118
  Receipt Date: 20110106
  Transmission Date: 20110831
  Serious: Yes (Other)
  Sender: FDA-Public Use
  Company Number: PHHY2011US01328

PATIENT
  Sex: Female

DRUGS (4)
  1. LORAZEPAM [Concomitant]
     Indication: ANXIETY
     Dosage: 0.5 MG, PRN
  2. IBUPROFEN [Suspect]
     Indication: PAIN
     Dosage: UNK, PRN
     Route: 048
  3. GILENYA [Suspect]
     Indication: MULTIPLE SCLEROSIS
     Dosage: 0.5 MG, DAILY
     Route: 048
     Dates: start: 20101221
  4. VITAMIN D [Concomitant]
     Dosage: 1000 IU, UNK
     Route: 048
     Dates: start: 20101001

REACTIONS (1)
  - URINARY TRACT INFECTION [None]
